FAERS Safety Report 9392208 (Version 7)
Quarter: 2013Q4

REPORT INFORMATION
  Report Type: Report from Study
  Country: CA (occurrence: CA)
  Receive Date: 20130710
  Receipt Date: 20131106
  Transmission Date: 20140711
  Serious: Yes (Other)
  Sender: FDA-Public Use
  Company Number: CA-ROCHE-1246865

PATIENT
  Age: 73 Year
  Sex: Male

DRUGS (7)
  1. RITUXAN [Suspect]
     Indication: CHRONIC LYMPHOCYTIC LEUKAEMIA
     Route: 042
     Dates: start: 20111227
  2. RITUXAN [Suspect]
     Route: 042
     Dates: start: 20131011
  3. ACETAMINOPHEN [Concomitant]
     Route: 048
     Dates: start: 20111227
  4. DIPHENHYDRAMINE HCL [Concomitant]
     Route: 048
     Dates: start: 20111227
  5. METHYLPREDNISOLONE [Concomitant]
     Route: 042
     Dates: start: 20111227
  6. ACETYLSALICYLIC ACID [Concomitant]
     Route: 065
  7. SEPTRA [Concomitant]
     Route: 065
     Dates: start: 201309

REACTIONS (5)
  - Blood iron decreased [Not Recovered/Not Resolved]
  - Infusion related reaction [Recovered/Resolved]
  - Spinal fracture [Not Recovered/Not Resolved]
  - Haemoglobin decreased [Unknown]
  - Platelet count decreased [Not Recovered/Not Resolved]
